FAERS Safety Report 10045499 (Version 1)
Quarter: 2014Q1

REPORT INFORMATION
  Report Type: Spontaneous
  Country: US (occurrence: US)
  Receive Date: 20140328
  Receipt Date: 20140328
  Transmission Date: 20141002
  Serious: Yes (Hospitalization)
  Sender: FDA-Public Use
  Company Number: US-ELI_LILLY_AND_COMPANY-US201403008476

PATIENT
  Sex: Female

DRUGS (2)
  1. HUMALOG LISPRO [Suspect]
     Indication: DIABETES MELLITUS
     Dosage: UNK
     Route: 065
     Dates: start: 201306
  2. LANTUS [Concomitant]
     Dosage: 20 U, EACH EVENING

REACTIONS (5)
  - Cardiac disorder [Unknown]
  - Pneumonia [Unknown]
  - Cataract [Unknown]
  - Blood glucose increased [Recovered/Resolved]
  - Medication error [Unknown]
